FAERS Safety Report 9276234 (Version 2)
Quarter: 2013Q2

REPORT INFORMATION
  Report Type: Spontaneous
  Country: US (occurrence: US)
  Receive Date: 20130507
  Receipt Date: 20130509
  Transmission Date: 20140414
  Serious: Yes (Life-Threatening, Other)
  Sender: FDA-Public Use
  Company Number: US-ASTRAZENECA-2013SE29009

PATIENT
  Sex: Male

DRUGS (3)
  1. NEXIUM [Suspect]
     Indication: GASTROOESOPHAGEAL REFLUX DISEASE
     Route: 048
  2. CHEMO [Concomitant]
  3. PROTONICS [Concomitant]
     Indication: GASTROOESOPHAGEAL REFLUX DISEASE
     Dates: start: 20130421

REACTIONS (5)
  - Metastases to liver [Unknown]
  - Oesophageal carcinoma [Unknown]
  - Deep vein thrombosis [Unknown]
  - Carpal tunnel syndrome [Unknown]
  - Chest pain [Unknown]
